FAERS Safety Report 4463419-9 (Version None)
Quarter: 2004Q3

REPORT INFORMATION
  Report Type: 
  Country: None (occurrence: None)
  Receive Date: 20040928
  Receipt Date: 20040913
  Transmission Date: 20050211
  Serious: Yes (Death, Hospitalization, Other)
  Sender: FDA-Public Use
  Company Number: 04-201-0768-1

PATIENT
  Age: 74 Year
  Sex: Male
  Weight: 86.637 kg

DRUGS (1)
  1. DAUNORUBICIN BEN VENUES LABS [Suspect]
     Indication: ACUTE MYELOID LEUKAEMIA
     Dosage: 45 MG/M2 IV DAYS 1,3
     Route: 042

REACTIONS (7)
  - BLOOD BILIRUBIN INCREASED [None]
  - GAMMA-GLUTAMYLTRANSFERASE INCREASED [None]
  - HYPOTENSION [None]
  - INFECTION [None]
  - NEUTROPENIA [None]
  - RENAL FAILURE [None]
  - SUPRAVENTRICULAR TACHYCARDIA [None]
